FAERS Safety Report 21235864 (Version 1)
Quarter: 2022Q3

REPORT INFORMATION
  Report Type: Report from Study
  Country: IT (occurrence: IT)
  Receive Date: 20220821
  Receipt Date: 20220821
  Transmission Date: 20221026
  Serious: Yes (Death)
  Sender: FDA-Public Use
  Company Number: IT-ABBVIE-22K-083-4510928-00

PATIENT
  Age: 80 Year
  Sex: Male

DRUGS (2)
  1. CARBIDOPA\LEVODOPA [Suspect]
     Active Substance: CARBIDOPA\LEVODOPA
     Indication: Parkinson^s disease
     Dosage: TOTAL DAILY DOSE(MG): 972; PUMP SETTING:MD:2+3; CR: 2,9 (14H); ED:3, 20 MG/ML 5 MG/ML GEL
     Route: 050
     Dates: start: 20110120, end: 20220715
  2. CARBIDOPA\LEVODOPA [Suspect]
     Active Substance: CARBIDOPA\LEVODOPA

REACTIONS (2)
  - COVID-19 [Fatal]
  - Lower respiratory tract infection viral [Fatal]

NARRATIVE: CASE EVENT DATE: 20220601
